FAERS Safety Report 23122446 (Version 1)
Quarter: 2023Q4

REPORT INFORMATION
  Report Type: Spontaneous
  Country: US (occurrence: None)
  Receive Date: 20231030
  Receipt Date: 20231030
  Transmission Date: 20240110
  Serious: No
  Sender: FDA-Public Use
  Company Number: 2023A240307

PATIENT

DRUGS (1)
  1. FARXIGA [Suspect]
     Active Substance: DAPAGLIFLOZIN PROPANEDIOL
     Dosage: 5.0MG UNKNOWN
     Route: 048

REACTIONS (4)
  - Glycosylated haemoglobin increased [Unknown]
  - Vulvovaginal pruritus [Unknown]
  - Renal disorder [Unknown]
  - Kidney infection [Recovering/Resolving]
